FAERS Safety Report 6955592-5 (Version None)
Quarter: 2010Q3

REPORT INFORMATION
  Report Type: 
  Country: None (occurrence: None)
  Receive Date: 20100830
  Receipt Date: 20100817
  Transmission Date: 20110219
  Serious: Yes (Life-Threatening)
  Sender: FDA-Public Use
  Company Number: JP-ROCHE-678442

PATIENT
  Age: 34 Year
  Sex: Male

DRUGS (7)
  1. VALGANCICLOVIR [Suspect]
     Indication: CYTOMEGALOVIRUS INFECTION
     Route: 048
     Dates: start: 20090810, end: 20090823
  2. CELL CEPT [Concomitant]
     Route: 048
     Dates: start: 20090416
  3. PREDNISOLONE [Concomitant]
     Route: 048
     Dates: start: 20090421
  4. COTRIM [Concomitant]
     Dosage: TDD: SULFAM ETHOXAZOLE: 400 MG + TRIMETHOPRIM: 80 MG
     Route: 048
     Dates: start: 20090427, end: 20100110
  5. GASTER D [Concomitant]
     Route: 048
     Dates: start: 20090502
  6. NU-LOTAN [Concomitant]
     Route: 048
     Dates: start: 20090616
  7. PROGRAFT [Concomitant]
     Route: 048
     Dates: start: 20090416

REACTIONS (1)
  - INTERSTITIAL LUNG DISEASE [None]
